FAERS Safety Report 20003713 (Version 1)
Quarter: 2021Q4

REPORT INFORMATION
  Report Type: Other
  Country: NL (occurrence: NL)
  Receive Date: 20211028
  Receipt Date: 20211028
  Transmission Date: 20220303
  Serious: Yes (Hospitalization)
  Sender: FDA-Public Use
  Company Number: NL-AJANTA PHARMA USA INC.-2121090

PATIENT
  Age: 34 Year
  Sex: Male

DRUGS (1)
  1. LAMOTRIGINE [Suspect]
     Active Substance: LAMOTRIGINE

REACTIONS (3)
  - Haemophagocytic lymphohistiocytosis [Unknown]
  - Pancreatitis [Unknown]
  - Systemic lupus erythematosus [Unknown]
